APPROVED DRUG PRODUCT: LIDOCAINE HYDROCHLORIDE AND EPINEPHRINE
Active Ingredient: EPINEPHRINE; LIDOCAINE HYDROCHLORIDE
Strength: 0.01MG/ML;2%
Dosage Form/Route: INJECTABLE;INJECTION
Application: A080504 | Product #004
Applicant: BELMORA LLC
Approved: Oct 19, 1983 | RLD: No | RS: No | Type: DISCN